FAERS Safety Report 10167081 (Version 1)
Quarter: 2014Q2

REPORT INFORMATION
  Report Type: Spontaneous
  Country: US (occurrence: US)
  Receive Date: 20140512
  Receipt Date: 20140512
  Transmission Date: 20141212
  Serious: No
  Sender: FDA-Public Use
  Company Number: US-ENDO PHARMACEUTICALS INC.-TRIP20130006

PATIENT
  Sex: Female
  Weight: 56.75 kg

DRUGS (1)
  1. TRI-PREVIFEM TABLETS [Suspect]
     Indication: CONTRACEPTION
     Dosage: UNKNOWN
     Route: 048

REACTIONS (2)
  - Metrorrhagia [Recovered/Resolved]
  - Acne [Recovered/Resolved]
